FAERS Safety Report 17264736 (Version 5)
Quarter: 2020Q4

REPORT INFORMATION
  Report Type: Spontaneous
  Country: US (occurrence: US)
  Receive Date: 20200113
  Receipt Date: 20201216
  Transmission Date: 20210113
  Serious: Yes (Other)
  Sender: FDA-Public Use
  Company Number: US-PFIZER INC-2020006458

PATIENT
  Age: 71 Year
  Sex: Female

DRUGS (2)
  1. FORTEO [Concomitant]
     Active Substance: TERIPARATIDE
     Dosage: UNK
     Dates: start: 202002
  2. XELJANZ XR [Suspect]
     Active Substance: TOFACITINIB CITRATE
     Indication: RHEUMATOID ARTHRITIS
     Dosage: 11 MG, 1X/DAY
     Route: 048
     Dates: start: 20191118

REACTIONS (20)
  - Rhinorrhoea [Unknown]
  - Headache [Unknown]
  - Pain in extremity [Unknown]
  - Fall [Unknown]
  - Oropharyngeal pain [Unknown]
  - Back pain [Unknown]
  - Paraesthesia [Unknown]
  - Condition aggravated [Unknown]
  - Dizziness [Not Recovered/Not Resolved]
  - Arthralgia [Unknown]
  - Nasal congestion [Unknown]
  - Loss of consciousness [Unknown]
  - Depressed mood [Not Recovered/Not Resolved]
  - Cough [Unknown]
  - Hypertension [Recovering/Resolving]
  - Peripheral swelling [Unknown]
  - Contusion [Unknown]
  - Drug ineffective [Unknown]
  - Respiratory disorder [Unknown]
  - Blood pressure abnormal [Unknown]

NARRATIVE: CASE EVENT DATE: 202004
